FAERS Safety Report 8958646 (Version 1)
Quarter: 2012Q4

REPORT INFORMATION
  Report Type: Spontaneous
  Country: US (occurrence: None)
  Receive Date: 20121128
  Receipt Date: 20121128
  Transmission Date: 20130627
  Serious: Yes (Other)
  Sender: FDA-Public Use
  Company Number: FK201203415

PATIENT
  Age: 21 Year
  Sex: Female

DRUGS (3)
  1. FOLIC ACID [Suspect]
     Indication: ABDOMINAL DISCOMFORT
     Dosage: 5 mg, 1 in 24 hr, Unknown
  2. ADALIMUMAB [Concomitant]
  3. METHOTREXATE (METHOTREXATE) [Concomitant]

REACTIONS (3)
  - Inappropriate schedule of drug administration [None]
  - Drug administration error [None]
  - Abdominal discomfort [None]
